FAERS Safety Report 6781101-X (Version None)
Quarter: 2010Q2

REPORT INFORMATION
  Report Type: 
  Country: None (occurrence: None)
  Receive Date: 20100617
  Receipt Date: 20100617
  Transmission Date: 20101027
  Serious: Yes (Hospitalization)
  Sender: FDA-Public Use
  Company Number: None

PATIENT
  Age: 77 Year
  Sex: Male
  Weight: 74.8435 kg

DRUGS (1)
  1. CLOPIDOGREL [Suspect]
     Indication: ANGIOPLASTY
     Dosage: 75MG DAILY ORAL
     Route: 048

REACTIONS (2)
  - HEPATIC CIRRHOSIS [None]
  - HEPATITIS [None]
